FAERS Safety Report 25563039 (Version 1)
Quarter: 2025Q3

REPORT INFORMATION
  Report Type: Spontaneous
  Country: BR (occurrence: BR)
  Receive Date: 20250716
  Receipt Date: 20250716
  Transmission Date: 20251021
  Serious: Yes (Death)
  Sender: UCB
  Company Number: BR-UCBSA-2025042861

PATIENT
  Sex: Male

DRUGS (2)
  1. KEPPRA XR [Suspect]
     Active Substance: LEVETIRACETAM
     Indication: Neoplasm malignant
     Dates: start: 2022, end: 202507
  2. KEPPRA XR [Suspect]
     Active Substance: LEVETIRACETAM
     Indication: Product use in unapproved indication

REACTIONS (2)
  - Neoplasm malignant [Fatal]
  - Product use in unapproved indication [Unknown]

NARRATIVE: CASE EVENT DATE: 20220101
